FAERS Safety Report 9127629 (Version 1)
Quarter: 2013Q1

REPORT INFORMATION
  Report Type: Spontaneous
  Country: US (occurrence: US)
  Receive Date: 20130228
  Receipt Date: 20130228
  Transmission Date: 20140127
  Serious: Yes (Other)
  Sender: FDA-Public Use
  Company Number: US-GLAXOSMITHKLINE-A0988635A

PATIENT
  Age: 21 Year
  Sex: Female

DRUGS (6)
  1. LAMICTAL [Suspect]
     Indication: CONVULSION
     Dosage: 600MG PER DAY
     Route: 048
     Dates: start: 2009, end: 20120807
  2. TOPAMAX [Concomitant]
  3. EFFEXOR [Concomitant]
  4. ZYRTEC [Concomitant]
  5. PEPCID [Concomitant]
  6. PREDNISONE [Concomitant]

REACTIONS (2)
  - Angioedema [Not Recovered/Not Resolved]
  - Urticaria [Not Recovered/Not Resolved]
